FAERS Safety Report 5112926-4 (Version None)
Quarter: 2006Q3

REPORT INFORMATION
  Report Type: 
  Country: None (occurrence: None)
  Receive Date: 20060921
  Receipt Date: 20060921
  Transmission Date: 20061208
  Serious: Yes (Hospitalization)
  Sender: FDA-Public Use
  Company Number: None

PATIENT
  Age: 20 Year
  Sex: Male
  Weight: 247 kg

DRUGS (4)
  1. VANCOMYCIN [Suspect]
     Indication: STAPHYLOCOCCAL ABSCESS
     Dosage: 2 G IV BID
     Route: 042
     Dates: start: 20060507, end: 20060517
  2. DOCUSATE SODIUM [Concomitant]
  3. BUPROPION HCL [Concomitant]
  4. HEPARIN [Concomitant]

REACTIONS (1)
  - PYREXIA [None]
